FAERS Safety Report 21556143 (Version 1)
Quarter: 2022Q4

REPORT INFORMATION
  Report Type: Spontaneous
  Country: RO (occurrence: RO)
  Receive Date: 20221104
  Receipt Date: 20221104
  Transmission Date: 20230112
  Serious: Yes (Other)
  Sender: FDA-Public Use
  Company Number: RO-MYLANLABS-2022M1120974

PATIENT
  Age: 87 Year
  Sex: Male

DRUGS (6)
  1. ATORVASTATIN [Interacting]
     Active Substance: ATORVASTATIN
     Indication: Product used for unknown indication
     Dosage: UNK
     Route: 065
  2. APIXABAN [Interacting]
     Active Substance: APIXABAN
     Indication: Prophylaxis
     Dosage: UNK
     Route: 065
  3. ENZALUTAMIDE [Interacting]
     Active Substance: ENZALUTAMIDE
     Indication: Prostate cancer
     Dosage: UNK
     Route: 065
     Dates: start: 202109
  4. RAMIPRIL [Interacting]
     Active Substance: RAMIPRIL
     Indication: Product used for unknown indication
     Dosage: UNK
     Route: 065
  5. BISOPROLOL FUMARATE [Interacting]
     Active Substance: BISOPROLOL FUMARATE
     Indication: Product used for unknown indication
     Dosage: UNK
     Route: 065
  6. ZOLEDRONIC ACID [Concomitant]
     Active Substance: ZOLEDRONIC ACID
     Dosage: UNK
     Route: 065

REACTIONS (4)
  - Malignant neoplasm progression [Unknown]
  - Prostate cancer metastatic [Unknown]
  - Prostatic specific antigen increased [Unknown]
  - Drug interaction [Unknown]

NARRATIVE: CASE EVENT DATE: 20220601
